FAERS Safety Report 5661329-2 (Version None)
Quarter: 2008Q1

REPORT INFORMATION
  Report Type: 
  Country: None (occurrence: None)
  Receive Date: 20080312
  Receipt Date: 20080229
  Transmission Date: 20080703
  Serious: Yes (Other)
  Sender: FDA-Public Use
  Company Number: GB-JNJFOC-20080301219

PATIENT
  Age: 25 Year
  Sex: Female

DRUGS (7)
  1. INFLIXIMAB [Suspect]
     Indication: DRUG USE FOR UNKNOWN INDICATION
     Dosage: 6-WEEKLY INFUSIONS
     Route: 042
  2. PREDNISOLONE [Concomitant]
     Route: 048
  3. LEVOTHYROXINE SODIUM [Concomitant]
  4. MORPHINE SUL INJ [Concomitant]
  5. ORAMORPH SR [Concomitant]
  6. DICLOFENAC SODIUM [Concomitant]
  7. FLUOXETINE [Concomitant]

REACTIONS (2)
  - OSTEOMYELITIS [None]
  - PERICORONITIS [None]
